FAERS Safety Report 12857701 (Version 3)
Quarter: 2016Q4

REPORT INFORMATION
  Report Type: Spontaneous
  Country: JP (occurrence: JP)
  Receive Date: 20161018
  Receipt Date: 20161201
  Transmission Date: 20170207
  Serious: Yes (Other)
  Sender: FDA-Public Use
  Company Number: JP-CELLTRION HEALTHCARE HUNGARY KFT-2016JP010014

PATIENT

DRUGS (1)
  1. INFLIXIMAB BS FOR I.V. INFUSION100 (CTH) [Suspect]
     Active Substance: INFLIXIMAB
     Indication: RHEUMATOID ARTHRITIS
     Dosage: 3 DF/DAY
     Route: 042

REACTIONS (1)
  - Cholecystitis [Unknown]
